FAERS Safety Report 14189693 (Version 2)
Quarter: 2017Q4

REPORT INFORMATION
  Report Type: Report from Study
  Country: MX (occurrence: MX)
  Receive Date: 20171115
  Receipt Date: 20171117
  Transmission Date: 20180321
  Serious: Yes (Hospitalization, Other)
  Sender: FDA-Public Use
  Company Number: PHHY2017MX167461

PATIENT
  Age: 65 Year
  Sex: Female

DRUGS (4)
  1. TEGRETOL [Suspect]
     Active Substance: CARBAMAZEPINE
     Dosage: 3 OR 4 (200 MG), QD
     Route: 065
  2. RIVOTRIL [Concomitant]
     Active Substance: CLONAZEPAM
     Indication: PRODUCT USED FOR UNKNOWN INDICATION
     Route: 065
  3. TEGRETOL [Suspect]
     Active Substance: CARBAMAZEPINE
     Indication: TRIGEMINAL NEURALGIA
     Dosage: 3 DF (2 IN MNG, 1 NIGHT)
     Route: 065
  4. TEGRETOL [Suspect]
     Active Substance: CARBAMAZEPINE
     Dosage: 3 DF (2 IN MNG, 1 NIGHT BUT IF THE PAINS WERE VERY STRONG SHE TOOK 1 MORE AT MIDDAY, IN AN OPTIONA)
     Route: 065

REACTIONS (7)
  - Memory impairment [Unknown]
  - Neuralgia [Unknown]
  - Blood sodium decreased [Unknown]
  - Amnesia [Unknown]
  - Drug abuse [Unknown]
  - Malaise [Unknown]
  - Pain [Unknown]

NARRATIVE: CASE EVENT DATE: 201603
